FAERS Safety Report 14024055 (Version 1)
Quarter: 2017Q3

REPORT INFORMATION
  Report Type: Spontaneous
  Country: RO (occurrence: RO)
  Receive Date: 20170929
  Receipt Date: 20170929
  Transmission Date: 20171128
  Serious: Yes (Other)
  Sender: FDA-Public Use
  Company Number: RO-JNJFOC-20170924791

PATIENT

DRUGS (1)
  1. DOXORUBICIN HYDROCHLORIDE. [Suspect]
     Active Substance: DOXORUBICIN HYDROCHLORIDE
     Indication: PRODUCT USED FOR UNKNOWN INDICATION
     Dosage: 226 MG/M?, WITH THE MINIMUM-MAXIMUM RANGE OF 50?920 MG/M2
     Route: 065

REACTIONS (11)
  - Ejection fraction decreased [Unknown]
  - Supraventricular tachycardia [Unknown]
  - Electrocardiogram change [Unknown]
  - Fatigue [Unknown]
  - Dyspnoea [Unknown]
  - Brain natriuretic peptide increased [Unknown]
  - Atrioventricular block [Unknown]
  - Cardiotoxicity [Unknown]
  - Electrocardiogram QT prolonged [Unknown]
  - Cardiac failure [Unknown]
  - Blood pressure abnormal [Unknown]
